FAERS Safety Report 6195739-4 (Version None)
Quarter: 2009Q2

REPORT INFORMATION
  Report Type: 
  Country: None (occurrence: None)
  Receive Date: 20090520
  Receipt Date: 20071008
  Transmission Date: 20091009
  Serious: Yes (Hospitalization)
  Sender: FDA-Public Use
  Company Number: US-ASTRAZENECA-2007UW05663

PATIENT
  Age: 46 Year
  Sex: Male
  Weight: 128.4 kg

DRUGS (13)
  1. SEROQUEL [Suspect]
     Indication: DEPRESSION
     Route: 048
     Dates: end: 20060101
  2. SEROQUEL [Suspect]
     Dosage: 25 MG-100 MG
     Route: 048
     Dates: start: 20030512
  3. RISPERDAL [Concomitant]
     Route: 048
  4. FLUOXETINE HCL [Concomitant]
     Route: 065
  5. AMBIEN [Concomitant]
     Route: 048
  6. BUSPAR [Concomitant]
     Dosage: 10 MG TO 15 MG
     Route: 048
  7. DIPHENHYDRAMINE HCL [Concomitant]
     Route: 065
  8. HYDROCODONE BITARTRATE + ACETAMINOPHEN [Concomitant]
     Route: 065
  9. IBUPROFEN [Concomitant]
     Route: 048
  10. NEURONTIN [Concomitant]
     Route: 065
  11. ZYPREXA [Concomitant]
     Route: 065
  12. PENICILLIN [Concomitant]
     Route: 048
  13. NORVASC [Concomitant]
     Dosage: 5 MG TO 10 MG
     Route: 065

REACTIONS (7)
  - ARTHRALGIA [None]
  - DIABETES MELLITUS [None]
  - FIBROMA [None]
  - ILL-DEFINED DISORDER [None]
  - INSOMNIA [None]
  - JOINT SWELLING [None]
  - TOOTH DISORDER [None]
